FAERS Safety Report 10400691 (Version 1)
Quarter: 2014Q3

REPORT INFORMATION
  Report Type: Spontaneous
  Country: US (occurrence: US)
  Receive Date: 20140821
  Receipt Date: 20140821
  Transmission Date: 20150326
  Serious: No
  Sender: FDA-Public Use
  Company Number: US-ASTRAZENECA-2014SE04211

PATIENT
  Age: 78 Year
  Sex: Female
  Weight: 91.2 kg

DRUGS (11)
  1. NAPROXEN. [Concomitant]
     Active Substance: NAPROXEN
     Indication: HIP ARTHROPLASTY
  2. NEBULIZER [Concomitant]
     Active Substance: UNSPECIFIED INGREDIENT
     Dosage: UNKNOWN PRN
  3. SPIRONOLACT HCTZ [Concomitant]
     Indication: LOCAL SWELLING
     Dosage: 25-25MG DAILY
  4. BENZONATATE. [Concomitant]
     Active Substance: BENZONATATE
     Indication: PRODUCTIVE COUGH
     Dosage: 100MG 2 BID
  5. ALENDRONATE [Concomitant]
     Active Substance: ALENDRONATE SODIUM
     Indication: BONE DISORDER
  6. SMALL GRADE ASPRIN [Concomitant]
     Indication: ISCHAEMIC HEART DISEASE PROPHYLAXIS
     Dosage: UNKNOWN UNK
  7. VITAMIN D [Concomitant]
     Active Substance: CHOLECALCIFEROL
     Indication: OSTEOPOROSIS
  8. AMLODIPINE [Concomitant]
     Active Substance: AMLODIPINE BESYLATE
     Indication: BLOOD PRESSURE ABNORMAL
  9. SYMBICORT [Suspect]
     Active Substance: BUDESONIDE\FORMOTEROL FUMARATE DIHYDRATE
     Indication: ASTHMA
     Dosage: 160/4.5, 2 PUFFS BID
     Route: 055
  10. CARVEDILOL. [Concomitant]
     Active Substance: CARVEDILOL
     Indication: BLOOD PRESSURE ABNORMAL
  11. MULTIPLE VITAMIN [Concomitant]
     Active Substance: VITAMINS
     Dosage: UNKNOWN DAILY

REACTIONS (3)
  - Lip injury [Unknown]
  - Intentional product misuse [Unknown]
  - Device misuse [Unknown]

NARRATIVE: CASE EVENT DATE: 201401
